FAERS Safety Report 7110642-0 (Version None)
Quarter: 2010Q4

REPORT INFORMATION
  Report Type: 
  Country: None (occurrence: None)
  Receive Date: 20101118
  Receipt Date: 20101111
  Transmission Date: 20110411
  Serious: Yes (Other)
  Sender: FDA-Public Use
  Company Number: DE-PFIZER INC-DE-WYE-G06868210

PATIENT
  Age: 55 Year
  Sex: Female
  Weight: 76 kg

DRUGS (1)
  1. TREVILOR RETARD [Suspect]
     Indication: DEPRESSION
     Dosage: 75 MG, 1X/DAY
     Route: 048
     Dates: end: 20100709

REACTIONS (5)
  - DRUG WITHDRAWAL SYNDROME [None]
  - INTENTIONAL DRUG MISUSE [None]
  - IRRITABILITY [None]
  - RESTLESSNESS [None]
  - SLEEP DISORDER [None]
